FAERS Safety Report 17161510 (Version 1)
Quarter: 2019Q4

REPORT INFORMATION
  Report Type: Spontaneous
  Country: SE (occurrence: SE)
  Receive Date: 20191216
  Receipt Date: 20191216
  Transmission Date: 20200122
  Serious: Yes (Hospitalization)
  Sender: FDA-Public Use
  Company Number: SE-TEVA-2019-SE-1151354

PATIENT
  Age: 30 Year
  Sex: Female

DRUGS (3)
  1. LERGIGAN (PROMETHAZINE HYDROCHLORIDE) [Suspect]
     Active Substance: PROMETHAZINE HYDROCHLORIDE
     Route: 048
     Dates: start: 20181226, end: 20181226
  2. MIRTAZAPINE. [Suspect]
     Active Substance: MIRTAZAPINE
     Route: 048
     Dates: start: 20181226, end: 20181226
  3. SERTRALINE [Suspect]
     Active Substance: SERTRALINE HYDROCHLORIDE
     Dosage: 3000 MG
     Route: 048
     Dates: start: 20181226, end: 20181226

REACTIONS (7)
  - Tremor [Unknown]
  - Intentional overdose [Unknown]
  - Muscle rigidity [Unknown]
  - Depressed level of consciousness [Unknown]
  - Sinus tachycardia [Unknown]
  - Anxiety [Unknown]
  - Intentional self-injury [Unknown]

NARRATIVE: CASE EVENT DATE: 20181226
